FAERS Safety Report 21062951 (Version 1)
Quarter: 2022Q3

REPORT INFORMATION
  Report Type: Spontaneous
  Country: CN (occurrence: CN)
  Receive Date: 20220711
  Receipt Date: 20220711
  Transmission Date: 20221026
  Serious: Yes (Other)
  Sender: FDA-Public Use
  Company Number: CN-BAYER-2022A095672

PATIENT
  Age: 88 Year
  Sex: Female
  Weight: 66 kg

DRUGS (2)
  1. XARELTO [Suspect]
     Active Substance: RIVAROXABAN
     Indication: Anticoagulant therapy
     Dosage: 1 DF, QD
     Route: 048
     Dates: start: 20220512, end: 20220606
  2. HERBALS [Concomitant]
     Active Substance: HERBALS
     Dosage: 3 DF, TID
     Route: 048
     Dates: start: 20220512, end: 20220617

REACTIONS (2)
  - Alanine aminotransferase increased [Recovered/Resolved]
  - Aspartate aminotransferase increased [Recovered/Resolved]

NARRATIVE: CASE EVENT DATE: 20220605
